FAERS Safety Report 9365254 (Version 2)
Quarter: 2013Q3

REPORT INFORMATION
  Report Type: Spontaneous
  Country: SE (occurrence: SE)
  Receive Date: 20130625
  Receipt Date: 20130731
  Transmission Date: 20140515
  Serious: Yes (Other)
  Sender: FDA-Public Use
  Company Number: SE-ROCHE-1240480

PATIENT
  Age: 54 Year
  Sex: Male

DRUGS (2)
  1. PEGASYS [Suspect]
     Indication: PRODUCT USED FOR UNKNOWN INDICATION
     Route: 058
     Dates: start: 20101110, end: 20110429
  2. COPEGUS [Concomitant]
     Route: 065
     Dates: start: 2010, end: 20110429

REACTIONS (2)
  - Hearing impaired [Not Recovered/Not Resolved]
  - Tinnitus [Recovered/Resolved]
